FAERS Safety Report 6158705-0 (Version None)
Quarter: 2009Q2

REPORT INFORMATION
  Report Type: 
  Country: None (occurrence: None)
  Receive Date: 20090417
  Receipt Date: 20090415
  Transmission Date: 20091009
  Serious: Yes (Hospitalization)
  Sender: FDA-Public Use
  Company Number: A0778742A

PATIENT
  Age: 76 Year
  Sex: Male

DRUGS (11)
  1. ADVAIR HFA [Suspect]
     Indication: CHRONIC OBSTRUCTIVE PULMONARY DISEASE
     Route: 055
     Dates: end: 20080101
  2. ADVAIR HFA [Suspect]
     Dosage: 2PUFF TWICE PER DAY
     Route: 055
     Dates: start: 20080101
  3. SPIRIVA [Concomitant]
  4. ALBUTEROL [Concomitant]
  5. OMEPRAZOLE [Concomitant]
  6. TERAZOSIN HCL [Concomitant]
  7. UNSPECIFIED MEDICATION [Concomitant]
  8. AZOPT [Concomitant]
  9. ASPIRIN [Concomitant]
  10. ALBUTEROL [Concomitant]
  11. COLCHICINE [Concomitant]

REACTIONS (4)
  - ADVERSE EVENT [None]
  - GOUT [None]
  - PAIN IN EXTREMITY [None]
  - PNEUMONIA [None]
